FAERS Safety Report 23131505 (Version 1)
Quarter: 2023Q4

REPORT INFORMATION
  Report Type: Spontaneous
  Country: CN (occurrence: CN)
  Receive Date: 20231031
  Receipt Date: 20231031
  Transmission Date: 20240110
  Serious: Yes (Hospitalization, Other)
  Sender: FDA-Public Use
  Company Number: CN-009507513-2310CHN012517

PATIENT
  Age: 25 Year
  Sex: Female
  Weight: 52 kg

DRUGS (6)
  1. EMEND [Suspect]
     Active Substance: APREPITANT
     Indication: Vomiting
     Dosage: 80 MILLIGRAM, QD
     Route: 048
     Dates: start: 20231010, end: 20231015
  2. CISPLATIN [Suspect]
     Active Substance: CISPLATIN
     Indication: Chemotherapy
     Dosage: 30 MG, QD
     Route: 041
     Dates: start: 20231010, end: 20231015
  3. BLEOMYCIN [Concomitant]
     Active Substance: BLEOMYCIN SULFATE
     Indication: Chemotherapy
     Dosage: 15ML, QD
     Route: 030
     Dates: start: 20231010, end: 20231015
  4. SODIUM CHLORIDE [Concomitant]
     Active Substance: SODIUM CHLORIDE
     Indication: Medication dilution
     Dosage: 250 ML, QD
     Route: 041
     Dates: start: 20231010, end: 20231015
  5. GRANISETRON HYDROCHLORIDE [Concomitant]
     Active Substance: GRANISETRON HYDROCHLORIDE
     Indication: Vomiting
     Dosage: 3 MG, QD
     Route: 042
     Dates: start: 20231010, end: 20231015
  6. ETOPOSIDE [Concomitant]
     Active Substance: ETOPOSIDE
     Dosage: 150 MG
     Route: 041
     Dates: start: 20231010

REACTIONS (3)
  - Sinus bradycardia [Recovering/Resolving]
  - Arrhythmia [Recovering/Resolving]
  - Product use issue [Unknown]

NARRATIVE: CASE EVENT DATE: 20231010
